FAERS Safety Report 7420634-X (Version None)
Quarter: 2011Q2

REPORT INFORMATION
  Report Type: 
  Country: None (occurrence: None)
  Receive Date: 20110418
  Receipt Date: 20110411
  Transmission Date: 20111010
  Serious: Yes (Other)
  Sender: FDA-Public Use
  Company Number: US-ROCHE-549221

PATIENT
  Sex: Male
  Weight: 65.8 kg

DRUGS (1)
  1. ACCUTANE [Suspect]
     Indication: ACNE
     Route: 065
     Dates: start: 19980615, end: 19980820

REACTIONS (8)
  - COLITIS [None]
  - CONSTIPATION [None]
  - INFLAMMATORY BOWEL DISEASE [None]
  - GASTROOESOPHAGEAL REFLUX DISEASE [None]
  - GASTROINTESTINAL DISORDER [None]
  - ANXIETY [None]
  - CROHN'S DISEASE [None]
  - DEPRESSION [None]
